FAERS Safety Report 21408237 (Version 2)
Quarter: 2022Q4

REPORT INFORMATION
  Report Type: Spontaneous
  Country: GB (occurrence: GB)
  Receive Date: 20221004
  Receipt Date: 20221024
  Transmission Date: 20230112
  Serious: Yes (Other)
  Sender: FDA-Public Use
  Company Number: None

PATIENT
  Age: 68 Year
  Sex: Female

DRUGS (12)
  1. SULFUR HEXAFLUORIDE [Suspect]
     Active Substance: SULFUR HEXAFLUORIDE
     Indication: Stress echocardiogram
     Dosage: UNK
     Route: 042
     Dates: start: 20220907, end: 20220907
  2. DOBUTAMINE [Concomitant]
     Active Substance: DOBUTAMINE HYDROCHLORIDE
     Indication: Stress echocardiogram
     Dosage: 30 MCG/KG/MIN
  3. ATROPINE [Concomitant]
     Active Substance: ATROPINE
     Indication: Stress echocardiogram
     Dosage: 300 MCG
  4. ADIZEM [Concomitant]
     Active Substance: DILTIAZEM HYDROCHLORIDE
     Dosage: OD
  5. ASPIRIN [Concomitant]
     Active Substance: ASPIRIN
     Dosage: OD
  6. ATORVASTATIN [Concomitant]
     Active Substance: ATORVASTATIN
     Dosage: OD
  7. LANSOPRAZOLE [Concomitant]
     Active Substance: LANSOPRAZOLE
     Dosage: OD
  8. FAMOTIDINE [Concomitant]
     Active Substance: FAMOTIDINE
     Dosage: ON
  9. RAMIPRIL [Concomitant]
     Active Substance: RAMIPRIL
     Dosage: OD
  10. NITROGLYCERIN [Concomitant]
     Active Substance: NITROGLYCERIN
     Dosage: SPRAY PRN
  11. CARBOCYSTEINE [Concomitant]
     Active Substance: CARBOCYSTEINE
     Dosage: 2 CAPSULES TDS
  12. ALBUTEROL [Concomitant]
     Active Substance: ALBUTEROL
     Dosage: 100MICROGRAMS/DOSE INHALER 2 PUFFS QDS PRN

REACTIONS (1)
  - Asthma [Recovered/Resolved]

NARRATIVE: CASE EVENT DATE: 20220907
